FAERS Safety Report 10035768 (Version 1)
Quarter: 2014Q1

REPORT INFORMATION
  Report Type: Spontaneous
  Country: US (occurrence: US)
  Receive Date: 20140325
  Receipt Date: 20140325
  Transmission Date: 20141002
  Serious: No
  Sender: FDA-Public Use
  Company Number: US-TEVA-470961USA

PATIENT
  Sex: Female

DRUGS (2)
  1. PARAGARD 380A [Suspect]
     Indication: CONTRACEPTION
     Dates: start: 20140227, end: 20140227
  2. PARAGARD 380A [Suspect]
     Dates: start: 20140303, end: 20140303

REACTIONS (1)
  - Pain [Unknown]
